FAERS Safety Report 9716463 (Version 1)
Quarter: 2013Q4

REPORT INFORMATION
  Report Type: Spontaneous
  Country: KW (occurrence: KW)
  Receive Date: 20131127
  Receipt Date: 20131127
  Transmission Date: 20140711
  Serious: Yes (Death)
  Sender: FDA-Public Use
  Company Number: KW-INCYTE CORPORATION-2013IN002767

PATIENT
  Sex: Male

DRUGS (1)
  1. JAKAVI [Suspect]
     Dosage: UNK UNK, UNK
     Route: 048

REACTIONS (1)
  - Lung infection [Fatal]
